FAERS Safety Report 8453022-8 (Version None)
Quarter: 2012Q2

REPORT INFORMATION
  Report Type: 
  Country: None (occurrence: None)
  Receive Date: 20120620
  Receipt Date: 20120514
  Transmission Date: 20120825
  Serious: No
  Sender: FDA-Public Use
  Company Number: US-VERTEX PHARMACEUTICALS INC.-AE-2012-006487

PATIENT
  Sex: Female
  Weight: 71.732 kg

DRUGS (4)
  1. PEGASYS [Concomitant]
     Indication: HEPATITIS C
     Dates: start: 20120502
  2. RIBAVIRIN [Concomitant]
     Indication: HEPATITIS C
     Route: 048
     Dates: start: 20120502
  3. INCIVEK [Suspect]
     Indication: HEPATITIS C
     Route: 048
     Dates: start: 20120502
  4. HYDROCHLOROTHIAZIDE [Concomitant]

REACTIONS (7)
  - HEADACHE [None]
  - CHROMATURIA [None]
  - NAUSEA [None]
  - ANAL PRURITUS [None]
  - RASH PAPULAR [None]
  - CHILLS [None]
  - DYSGEUSIA [None]
